FAERS Safety Report 5062394-6 (Version None)
Quarter: 2006Q3

REPORT INFORMATION
  Report Type: 
  Country: None (occurrence: None)
  Receive Date: 20060726
  Receipt Date: 20060723
  Transmission Date: 20061208
  Serious: Yes (Other)
  Sender: FDA-Public Use
  Company Number: 2006013730

PATIENT
  Age: 55 Year
  Sex: Female
  Weight: 95 kg

DRUGS (4)
  1. QUILONUM RETARD [Suspect]
     Dosage: 10TAB SINGLE DOSE
     Route: 048
  2. DIGIMERCK [Suspect]
     Dosage: 60TAB SINGLE DOSE
     Route: 048
  3. NOCTAMID [Suspect]
     Dosage: 10TAB SINGLE DOSE
     Route: 048
  4. ZOLPIDEM TARTRATE [Suspect]
     Dosage: 10TAB SINGLE DOSE
     Route: 048

REACTIONS (4)
  - BRADYCARDIA [None]
  - FATIGUE [None]
  - NAUSEA [None]
  - SUICIDE ATTEMPT [None]
